FAERS Safety Report 8180497-4 (Version None)
Quarter: 2012Q1

REPORT INFORMATION
  Report Type: 
  Country: None (occurrence: None)
  Receive Date: 20120302
  Receipt Date: 20120229
  Transmission Date: 20120608
  Serious: Yes (Other)
  Sender: FDA-Public Use
  Company Number: RU-ROCHE-1044201

PATIENT

DRUGS (2)
  1. MYCOPHENOLATE MOFETIL (CELLCEPT) [Suspect]
     Indication: SCLERODERMA
     Route: 048
  2. MYCOPHENOLATE MOFETIL (CELLCEPT) [Suspect]
     Dosage: SINCE THE 2ND MONTH
     Route: 048

REACTIONS (2)
  - PERICARDITIS [None]
  - PERICARDITIS ADHESIVE [None]
